FAERS Safety Report 18116870 (Version 1)
Quarter: 2020Q3

REPORT INFORMATION
  Report Type: Spontaneous
  Country: US (occurrence: US)
  Receive Date: 20200805
  Receipt Date: 20200805
  Transmission Date: 20201103
  Serious: Yes (Other)
  Sender: FDA-Public Use
  Company Number: US-PURDUE-USA-2020-0160694

PATIENT
  Age: 11 Year
  Sex: Female

DRUGS (4)
  1. RISPERIDONE. [Interacting]
     Active Substance: RISPERIDONE
     Dosage: 1.75 MG, DAILY
     Route: 065
  2. RISPERIDONE. [Interacting]
     Active Substance: RISPERIDONE
     Indication: PRODUCT USED FOR UNKNOWN INDICATION
     Dosage: 2 MG, DAILY
     Route: 065
  3. METHYLPHENIDATE HYDROCHLORIDE. [Suspect]
     Active Substance: METHYLPHENIDATE HYDROCHLORIDE
     Indication: PRODUCT USED FOR UNKNOWN INDICATION
     Dosage: 30 MG, DAILY
     Route: 065
  4. VALPROATE [Concomitant]
     Active Substance: VALPROIC ACID
     Dosage: 750 MG, DAILY

REACTIONS (4)
  - Dystonia [Recovered/Resolved]
  - Drug interaction [Unknown]
  - Off label use [Unknown]
  - Aggression [Recovered/Resolved]
